FAERS Safety Report 12218772 (Version 2)
Quarter: 2016Q2

REPORT INFORMATION
  Report Type: Spontaneous
  Country: US (occurrence: US)
  Receive Date: 20160329
  Receipt Date: 20160406
  Transmission Date: 20160815
  Serious: Yes (Other)
  Sender: FDA-Public Use
  Company Number: US-MDT-ADR-2016-00580

PATIENT
  Age: 15 Year
  Sex: Female

DRUGS (37)
  1. BACITRACIN. [Suspect]
     Active Substance: BACITRACIN
     Dosage: AS NEEDED TO STOMA SITE
     Route: 061
  2. DIAZEPAM. [Suspect]
     Active Substance: DIAZEPAM
     Dosage: 5MG DAILY
     Route: 050
  3. AZITHROMYCIN ANHYDROUS. [Suspect]
     Active Substance: AZITHROMYCIN ANHYDROUS
     Dosage: 300MG EVERY MONDAY, WEDNESDAY, FRIDAY
     Route: 050
  4. GLYCOPYRROLATE. [Suspect]
     Active Substance: GLYCOPYRROLATE
     Dosage: 2MG IN 1MG/5ML SOLUTION 4 TIMES DAILY
     Route: 050
  5. LORAZEPAM. [Suspect]
     Active Substance: LORAZEPAM
     Indication: SEIZURE
     Dosage: 0.25-1MG AS NEEDED FOR SEIZURE CONTROL
     Route: 050
  6. ZINC OXIDE. [Suspect]
     Active Substance: ZINC OXIDE
     Indication: ANAL PRURITUS
     Dosage: AS NEEDED TO G-TUBE, J-TUBE SITES AND PERIANAL AREA FOR ITCHING AND IRRITATION
     Route: 061
  7. GABAPENTIN. [Suspect]
     Active Substance: GABAPENTIN
     Dosage: 800MG 3 TIMES DAILY
     Route: 050
  8. LIDOCAINE. [Suspect]
     Active Substance: LIDOCAINE
     Dosage: 2% AS NEEDED FOR CATHETERIZATION EVERY 4 HOURS; DURING CATHETERIZATION ONLY
     Route: 061
  9. LIDOCAINE. [Suspect]
     Active Substance: LIDOCAINE
     Indication: PRODUCT USED FOR UNKNOWN INDICATION
     Dosage: AS NEED TO G-TUBE STOMA SITE FOR IRRITATION
     Route: 061
  10. CETIRIZINE [Suspect]
     Active Substance: CETIRIZINE HYDROCHLORIDE
     Dosage: 10MG DAILY
     Route: 050
  11. DIPHENHYDRAMINE. [Suspect]
     Active Substance: DIPHENHYDRAMINE
     Indication: INSOMNIA
     Dosage: 25MG EVERY 6 HOURS AS NEEDED FOR DIFFICULTY SLEEPING, ITCHING OR ALLERGY SX
     Route: 050
  12. DIPHENHYDRAMINE. [Suspect]
     Active Substance: DIPHENHYDRAMINE
     Indication: HYPERSENSITIVITY
     Dosage: 25MG EVERY 6 HOURS AS NEEDED FOR DIFFICULTY SLEEPING, ITCHING OR ALLERGY SX
     Route: 050
  13. DUONEB [Suspect]
     Active Substance: ALBUTEROL SULFATE\IPRATROPIUM BROMIDE
     Indication: WHEEZING
     Dosage: 3ML EVERY 4 HOURS AS NEEDED FOR WHEEZING DURING RESPIRATORY ILLNESS
     Route: 055
  14. BACLOFEN. [Suspect]
     Active Substance: BACLOFEN
     Indication: DRUG WITHDRAWAL SYNDROME
     Dosage: 10MG EVERY 6 HOURS IN CASE OF WITHDRAWAL
     Route: 048
  15. BUDESONIDE. [Suspect]
     Active Substance: BUDESONIDE
     Dosage: 0.5MG SUSPENSION INHALATION TWICE DAILY
     Route: 055
  16. ALBUTEROL SULFATE. [Suspect]
     Active Substance: ALBUTEROL SULFATE
     Indication: RESPIRATORY DISTRESS
     Dosage: 2.5MG INHALATION EVERY 2 HOURS AS NEEDED FOR RESPIRATORY DISTRESS
     Route: 055
  17. PROBIOTIC [Suspect]
     Active Substance: PROBIOTICS NOS
     Dosage: 1 TABLET DAILY
     Route: 050
  18. SIMETHICONE (DIMETHICONE) [Suspect]
     Active Substance: DIMETHICONE
     Dosage: 40MG 4 TIMES DAILY
     Route: 050
  19. MELATONIN [Suspect]
     Active Substance: MELATONIN
     Dosage: 3MG DAILY AT BEDTIME
     Route: 050
  20. CLOTRIMAZOLE. [Suspect]
     Active Substance: CLOTRIMAZOLE
     Indication: PRURITUS
     Dosage: 4 TIMES DAILY AS NEEDED FOR ITCHING AND RASH
     Route: 061
  21. CLOTRIMAZOLE. [Suspect]
     Active Substance: CLOTRIMAZOLE
     Indication: RASH
     Dosage: 4 TIMES DAILY AS NEEDED FOR ITCHING AND RASH
     Route: 061
  22. ACETAMINOPHEN. [Suspect]
     Active Substance: ACETAMINOPHEN
     Indication: PAIN
     Dosage: 5MG EVERY 6 HOURS AS NEEDED FOR PAIN
     Route: 050
  23. LAMOTRIGINE. [Suspect]
     Active Substance: LAMOTRIGINE
     Dosage: 200MG 3 TIMES DAILY
     Route: 050
  24. MUPIROCIN. [Suspect]
     Active Substance: MUPIROCIN
     Dosage: AS NEEDED TO THE STOMA SITE
     Route: 061
  25. NYSTAIN [Suspect]
     Active Substance: NYSTATIN
     Indication: SKIN IRRITATION
     Dosage: 4 TIMES DAILY AS NEEDED FOR SKIN IRRITATION
     Route: 061
  26. MONONESSA [Suspect]
     Active Substance: ETHINYL ESTRADIOL\NORGESTIMATE
     Dosage: 1 TABLE DAILY
     Route: 048
  27. TIZANIDINE. [Suspect]
     Active Substance: TIZANIDINE
     Dosage: 1MG 4 TIMES DAILY
     Route: 050
  28. ZINC OXIDE. [Suspect]
     Active Substance: ZINC OXIDE
     Indication: ANORECTAL DISCOMFORT
     Dosage: AS NEEDED TO G-TUBE, J-TUBE SITES AND PERIANAL AREA FOR ITCHING AND IRRITATION
     Route: 061
  29. CALCIUM CARBONATE. [Suspect]
     Active Substance: CALCIUM CARBONATE
     Dosage: 600MG DAILY
     Route: 050
  30. DIASTAT [Suspect]
     Active Substance: DIAZEPAM
     Indication: SEIZURE
     Dosage: 50MG GEL AS NEEDED FOR SEIZURES LONGER THAN 3 MINUTES
     Route: 054
  31. DIAZEPAM. [Suspect]
     Active Substance: DIAZEPAM
     Indication: MUSCLE SPASMS
     Dosage: 5MG EVERY 4 HOURS AS NEEDED SPASMS
     Route: 050
  32. COMPOUNDED BACLOFEN [Suspect]
     Active Substance: BACLOFEN
     Route: 037
  33. DIAZEPAM. [Suspect]
     Active Substance: DIAZEPAM
     Indication: SEIZURE
     Dosage: 5-10MG AS NEEDED FOR SEIZURE PROTOCOL
     Route: 050
  34. SUCRALFATE. [Suspect]
     Active Substance: SUCRALFATE
     Dosage: 500MG 4 TIMES DAILY
     Route: 050
  35. ALBUTEROL SULFATE. [Suspect]
     Active Substance: ALBUTEROL SULFATE
     Dosage: 2.5 MG NEBS TWICE DAILY
     Route: 055
  36. OMEPRAZOLE. [Suspect]
     Active Substance: OMEPRAZOLE
     Dosage: 60MG TWICE DAILY
     Route: 050
  37. GABITRIL [Suspect]
     Active Substance: TIAGABINE HYDROCHLORIDE
     Dosage: 6MG 4 TIMES DAILY
     Route: 050

REACTIONS (3)
  - Swelling [Unknown]
  - Implant site swelling [Unknown]
  - Infection [Recovered/Resolved]
